FAERS Safety Report 14867563 (Version 1)
Quarter: 2018Q2

REPORT INFORMATION
  Report Type: Spontaneous
  Country: US (occurrence: US)
  Receive Date: 20180508
  Receipt Date: 20180508
  Transmission Date: 20180711
  Serious: Yes (Other)
  Sender: FDA-Public Use
  Company Number: PHEH2018US016252

PATIENT
  Sex: Female

DRUGS (1)
  1. PROMACTA [Suspect]
     Active Substance: ELTROMBOPAG OLAMINE
     Indication: THROMBOTIC MICROANGIOPATHY
     Dosage: 50 MG, QD
     Route: 048
     Dates: start: 20170118

REACTIONS (2)
  - Chest pain [Unknown]
  - Dyspnoea [Unknown]
